FAERS Safety Report 6901668-8 (Version None)
Quarter: 2010Q3

REPORT INFORMATION
  Report Type: 
  Country: None (occurrence: None)
  Receive Date: 20100802
  Receipt Date: 20100802
  Transmission Date: 20110219
  Serious: Yes (Other)
  Sender: FDA-Public Use
  Company Number: None

PATIENT
  Age: 41 Year
  Sex: Female
  Weight: 102.0593 kg

DRUGS (1)
  1. HYDROCODONE BITARTRATE AND ACETAMINOPHEN [Suspect]
     Indication: ANALGESIC THERAPY
     Dosage: 1/2 TO 1 TABLET 3 TIMES A DAY PO
     Route: 048
     Dates: start: 20100730, end: 20100731

REACTIONS (4)
  - RASH ERYTHEMATOUS [None]
  - RASH PRURITIC [None]
  - SWOLLEN TONGUE [None]
  - URTICARIA [None]
